FAERS Safety Report 5505155-3 (Version None)
Quarter: 2007Q4

REPORT INFORMATION
  Report Type: 
  Country: None (occurrence: None)
  Receive Date: 20071102
  Receipt Date: 20071023
  Transmission Date: 20080405
  Serious: Yes (Hospitalization)
  Sender: FDA-Public Use
  Company Number: US-AMGEN-QUU249481

PATIENT
  Sex: Female

DRUGS (2)
  1. ENBREL [Suspect]
     Indication: PSORIATIC ARTHROPATHY
     Route: 058
     Dates: start: 20050101
  2. ARAVA [Concomitant]
     Route: 048
     Dates: start: 20050101

REACTIONS (7)
  - ARTHRALGIA [None]
  - HYPOAESTHESIA [None]
  - INJECTION SITE IRRITATION [None]
  - NECK PAIN [None]
  - NERVE INJURY [None]
  - PARALYSIS [None]
  - PSORIATIC ARTHROPATHY [None]
